FAERS Safety Report 24417379 (Version 1)
Quarter: 2024Q4

REPORT INFORMATION
  Report Type: Spontaneous
  Country: TW (occurrence: TW)
  Receive Date: 20241009
  Receipt Date: 20241009
  Transmission Date: 20250115
  Serious: Yes (Hospitalization)
  Sender: BAYER
  Company Number: TW-BAYER-2024A135942

PATIENT
  Sex: Male

DRUGS (1)
  1. XOFIGO [Suspect]
     Active Substance: RADIUM RA-223 DICHLORIDE
     Dosage: 2 INJECTIONS
     Dates: start: 20240717, end: 20240918

REACTIONS (2)
  - Cough [None]
  - White blood cell count decreased [None]

NARRATIVE: CASE EVENT DATE: 20240901
